FAERS Safety Report 14553876 (Version 1)
Quarter: 2018Q1

REPORT INFORMATION
  Report Type: Spontaneous
  Country: US (occurrence: US)
  Receive Date: 20180217
  Receipt Date: 20180217
  Transmission Date: 20180509
  Serious: No
  Sender: FDA-Public Use
  Company Number: None

PATIENT
  Age: 47 Year
  Sex: Female

DRUGS (1)
  1. MAVYRET [Suspect]
     Active Substance: GLECAPREVIR\PIBRENTASVIR
     Indication: HEPATITIS C
     Dosage: 300/120MG 3 TABLETS DAILY PO
     Route: 048
     Dates: start: 20180208

REACTIONS (4)
  - Depression [None]
  - Condition aggravated [None]
  - Crying [None]
  - Chills [None]

NARRATIVE: CASE EVENT DATE: 20180208
